FAERS Safety Report 9282112 (Version 1)
Quarter: 2013Q2

REPORT INFORMATION
  Report Type: Spontaneous
  Country: EC (occurrence: EC)
  Receive Date: 20130510
  Receipt Date: 20130510
  Transmission Date: 20140414
  Serious: Yes (Hospitalization)
  Sender: FDA-Public Use
  Company Number: EC-AMGEN-ECUSP2013032838

PATIENT
  Age: 35 Year
  Sex: Female

DRUGS (5)
  1. PEGFILGRASTIM [Suspect]
     Indication: PRODUCT USED FOR UNKNOWN INDICATION
     Dosage: 6 MG, 1 IN 1 MONTH
     Route: 058
     Dates: start: 20130206, end: 20130328
  2. RANITIDINE [Suspect]
     Indication: PRODUCT USED FOR UNKNOWN INDICATION
     Dosage: 150 MG, 1 IN 12 HR
     Route: 048
  3. CHEMOTHERAPEUTICS [Concomitant]
     Dosage: UNK
  4. IBUPROFEN [Concomitant]
     Dosage: UNK UNK, Q12H
     Route: 048
  5. PARACETAMOL [Concomitant]
     Dosage: UNK
     Route: 048

REACTIONS (1)
  - Anaphylactic reaction [Recovered/Resolved]
